FAERS Safety Report 23578091 (Version 1)
Quarter: 2024Q1

REPORT INFORMATION
  Report Type: Spontaneous
  Country: ES (occurrence: ES)
  Receive Date: 20240229
  Receipt Date: 20240229
  Transmission Date: 20240410
  Serious: Yes (Other)
  Sender: FDA-Public Use
  Company Number: None

PATIENT
  Age: 55 Year
  Sex: Male
  Weight: 58 kg

DRUGS (13)
  1. OMEPRAZOLE [Interacting]
     Active Substance: OMEPRAZOLE
     Indication: Prophylaxis
     Dosage: DAILY DOSE: 20 MILLIGRAM
     Route: 048
     Dates: start: 20231226
  2. GANCICLOVIR [Suspect]
     Active Substance: GANCICLOVIR
     Indication: Cytomegalovirus viraemia
  3. GANCICLOVIR [Suspect]
     Active Substance: GANCICLOVIR
     Indication: Pneumonia cytomegaloviral
  4. VANCOMYCIN [Interacting]
     Active Substance: VANCOMYCIN
     Indication: Lower respiratory tract infection
     Dosage: DAILY DOSE: 750 MILLIGRAM
     Route: 042
     Dates: start: 20240110, end: 20240110
  5. VANCOMYCIN [Interacting]
     Active Substance: VANCOMYCIN
     Indication: Lower respiratory tract infection
     Dosage: 10 DAYS
     Route: 048
     Dates: start: 20240116
  6. VANCOMYCIN [Interacting]
     Active Substance: VANCOMYCIN
     Indication: Lower respiratory tract infection
     Dosage: EVERY 6 HOURS?DAILY DOSE: 500 MILLIGRAM
     Route: 048
     Dates: start: 20240125
  7. MEROPENEM [Interacting]
     Active Substance: MEROPENEM
     Indication: Haemophilus sepsis
     Route: 042
     Dates: start: 20231222, end: 20240102
  8. MEROPENEM [Interacting]
     Active Substance: MEROPENEM
     Indication: Respiratory syncytial virus infection
     Route: 042
     Dates: start: 20231222, end: 20240102
  9. MEROPENEM [Interacting]
     Active Substance: MEROPENEM
     Indication: Haemophilus sepsis
     Dosage: DAILY DOSE: 3 GRAM
     Route: 042
     Dates: start: 20240105, end: 20240110
  10. MEROPENEM [Interacting]
     Active Substance: MEROPENEM
     Indication: Respiratory syncytial virus infection
     Dosage: DAILY DOSE: 3 GRAM
     Route: 042
     Dates: start: 20240105, end: 20240110
  11. AZITHROMYCIN [Interacting]
     Active Substance: AZITHROMYCIN
     Indication: Lower respiratory tract infection
     Dosage: DAILY DOSE: 500 MILLIGRAM
     Route: 048
     Dates: start: 20231227, end: 20240123
  12. AMPHOTERICIN B [Concomitant]
     Active Substance: AMPHOTERICIN B
     Indication: Leishmaniasis
     Dates: start: 20231221, end: 20231228
  13. AMPHOTERICIN B [Concomitant]
     Active Substance: AMPHOTERICIN B
     Indication: Leishmaniasis
     Dates: start: 20240106, end: 20240110

REACTIONS (1)
  - Pseudomembranous colitis [Recovered/Resolved]

NARRATIVE: CASE EVENT DATE: 20240115
